FAERS Safety Report 20078690 (Version 2)
Quarter: 2021Q4

REPORT INFORMATION
  Report Type: Report from Study
  Country: MX (occurrence: MX)
  Receive Date: 20211117
  Receipt Date: 20211228
  Transmission Date: 20220303
  Serious: Yes (Other)
  Sender: FDA-Public Use
  Company Number: MX-NOVARTISPH-NVSC2021MX262491

PATIENT
  Sex: Female
  Weight: 63 kg

DRUGS (4)
  1. ENTRESTO [Suspect]
     Active Substance: SACUBITRIL\VALSARTAN
     Indication: Cardiac failure
     Dosage: 1 DF, BID (200 MG)
     Route: 048
     Dates: start: 202105
  2. ENTRESTO [Suspect]
     Active Substance: SACUBITRIL\VALSARTAN
     Indication: Cardiac disorder
     Dosage: 1 DF, BID (200 MG)
     Route: 048
     Dates: start: 202005
  3. IVABRADINE [Concomitant]
     Active Substance: IVABRADINE
     Indication: Blood pressure measurement
     Dosage: 1 DF, QD (STARTED APPROXIMATELY 5 YEARS AGO)
     Route: 048
  4. LINAGLIPTIN [Concomitant]
     Active Substance: LINAGLIPTIN
     Indication: Diabetes mellitus
     Dosage: 1 DF, QD (STARTED APPROXIMATELY 3 YEARS AGO)
     Route: 048

REACTIONS (2)
  - Fall [Unknown]
  - Off label use [Unknown]
